FAERS Safety Report 21441812 (Version 2)
Quarter: 2022Q4

REPORT INFORMATION
  Report Type: Spontaneous
  Country: US (occurrence: US)
  Receive Date: 20221011
  Receipt Date: 20221108
  Transmission Date: 20230112
  Serious: No
  Sender: FDA-Public Use
  Company Number: US-Calliditas-2022CAL00379

PATIENT
  Age: 49 Year
  Sex: Male
  Weight: 137.4 kg

DRUGS (4)
  1. TARPEYO [Suspect]
     Active Substance: BUDESONIDE
     Indication: Haematuria
     Dosage: 16 MG (4 MG CAPSULES) DAILY
     Route: 048
     Dates: start: 20220902
  2. CHLORTHALIDONE [Concomitant]
     Active Substance: CHLORTHALIDONE
  3. ALLOPURINOL [Concomitant]
     Active Substance: ALLOPURINOL
  4. LOSARTAN [Concomitant]
     Active Substance: LOSARTAN

REACTIONS (2)
  - Flatulence [Recovering/Resolving]
  - Diarrhoea [Recovering/Resolving]

NARRATIVE: CASE EVENT DATE: 20220901
